FAERS Safety Report 9121897 (Version 1)
Quarter: 2013Q1

REPORT INFORMATION
  Report Type: Spontaneous
  Country: US (occurrence: US)
  Receive Date: 20130114
  Receipt Date: 20130114
  Transmission Date: 20140127
  Serious: No
  Sender: FDA-Public Use
  Company Number: US-009507513-1301USA004648

PATIENT
  Sex: Male

DRUGS (1)
  1. PEGINTRON [Suspect]
     Dosage: 150 MICROGRAM, QW
     Route: 058

REACTIONS (5)
  - Underdose [Unknown]
  - Overdose [Unknown]
  - Underdose [Unknown]
  - No adverse event [Unknown]
  - Device malfunction [Unknown]
